FAERS Safety Report 7941890-5 (Version None)
Quarter: 2011Q4

REPORT INFORMATION
  Report Type: 
  Country: None (occurrence: None)
  Receive Date: 20111128
  Receipt Date: 20111115
  Transmission Date: 20120403
  Serious: Yes (Hospitalization, Other)
  Sender: FDA-Public Use
  Company Number: US-BAYER-201034248NA

PATIENT
  Age: 30 Year
  Sex: Female
  Weight: 66 kg

DRUGS (11)
  1. CITRACAL [Concomitant]
     Route: 048
  2. FOLIC ACID [Concomitant]
     Dosage: UNK UNK, QD
     Route: 048
  3. MOTRIN [Concomitant]
     Dosage: 800 MG, TID
     Route: 048
  4. YAZ [Suspect]
     Indication: ACNE
     Dosage: UNK UNK, QD
     Route: 048
     Dates: start: 20070501, end: 20080101
  5. HYDROXYUREA [Concomitant]
     Dosage: 1000MG ALTERNATING WITH 1500MG
     Route: 048
  6. OXYCODONE HCL [Concomitant]
     Indication: PAIN
     Dosage: 5 MG, UNK
     Route: 048
  7. OXYCONTIN [Concomitant]
     Indication: PAIN
     Dosage: 50 MG, BID
     Route: 048
  8. ZOLOFT [Concomitant]
     Dosage: 100 MG, UNK
     Route: 048
  9. YASMIN [Suspect]
     Indication: ACNE
     Dosage: UNK UNK, QD
     Route: 048
     Dates: start: 20070501, end: 20080101
  10. METHADONE HYDROCHLORIDE [Concomitant]
     Indication: PAIN
  11. MOXIFLOXACIN [Concomitant]
     Route: 048

REACTIONS (3)
  - DEPRESSION [None]
  - PULMONARY EMBOLISM [None]
  - PULMONARY THROMBOSIS [None]
